FAERS Safety Report 13340142 (Version 2)
Quarter: 2017Q2

REPORT INFORMATION
  Report Type: Spontaneous
  Country: US (occurrence: US)
  Receive Date: 20170316
  Receipt Date: 20170522
  Transmission Date: 20170830
  Serious: No
  Sender: FDA-Public Use
  Company Number: US-TEVA-747271ACC

PATIENT
  Age: 49 Year
  Sex: Female

DRUGS (19)
  1. VENLAFAXINE [Concomitant]
     Active Substance: VENLAFAXINE HYDROCHLORIDE
  2. QVAR [Concomitant]
     Active Substance: BECLOMETHASONE DIPROPIONATE
  3. COPAXONE [Suspect]
     Active Substance: GLATIRAMER ACETATE
     Indication: MULTIPLE SCLEROSIS
     Route: 058
     Dates: start: 201609, end: 201704
  4. VITAMIN B6 [Concomitant]
     Active Substance: PYRIDOXINE HYDROCHLORIDE
  5. VITAMIN B1 [Concomitant]
     Active Substance: THIAMINE HYDROCHLORIDE
  6. VITAMIN B12 [Concomitant]
     Active Substance: CYANOCOBALAMIN
  7. VITAMIN C [Concomitant]
     Active Substance: ASCORBIC ACID
  8. FERROUS SULFATE. [Concomitant]
     Active Substance: FERROUS SULFATE
  9. PRAMIPEXOLE. [Concomitant]
     Active Substance: PRAMIPEXOLE
  10. DIVALPROEX [Concomitant]
     Active Substance: DIVALPROEX SODIUM
  11. CENTRUM [Concomitant]
     Active Substance: VITAMINS
  12. ATENOLOL. [Concomitant]
     Active Substance: ATENOLOL
  13. PROVENTIL [Concomitant]
     Active Substance: ALBUTEROL
  14. VITAMIN E [Concomitant]
     Active Substance: .ALPHA.-TOCOPHEROL
  15. HYDROCODONE BITARTRATE AND ACETAMINOPHEN [Concomitant]
     Active Substance: ACETAMINOPHEN\HYDROCODONE BITARTRATE
  16. ZOLPIDEM [Concomitant]
     Active Substance: ZOLPIDEM\ZOLPIDEM TARTRATE
  17. VITAMIN D [Concomitant]
     Active Substance: CHOLECALCIFEROL
  18. ASA [Concomitant]
     Active Substance: ASPIRIN
  19. CLONAZEPAM. [Concomitant]
     Active Substance: CLONAZEPAM

REACTIONS (5)
  - Balance disorder [Unknown]
  - Depression [Unknown]
  - Anxiety [Unknown]
  - Contusion [Unknown]
  - Injection site reaction [Unknown]

NARRATIVE: CASE EVENT DATE: 20170201
